FAERS Safety Report 10874844 (Version 1)
Quarter: 2015Q1

REPORT INFORMATION
  Report Type: Spontaneous
  Country: US (occurrence: US)
  Receive Date: 20150227
  Receipt Date: 20150227
  Transmission Date: 20150721
  Serious: Yes (Death)
  Sender: FDA-Public Use
  Company Number: US-BANPHARM-20153533

PATIENT
  Age: 29 Year
  Sex: Female

DRUGS (6)
  1. HYDROCODONE [Suspect]
     Active Substance: HYDROCODONE
  2. ALPRAZOLAM. [Suspect]
     Active Substance: ALPRAZOLAM
  3. ETHANOL [Suspect]
     Active Substance: ALCOHOL
  4. ACETAMINOPHEN. [Suspect]
     Active Substance: ACETAMINOPHEN
  5. DIPHENHYDRAMINE UNKNOWN PRODUCT [Suspect]
     Active Substance: DIPHENHYDRAMINE
  6. OXYCODONE [Suspect]
     Active Substance: OXYCODONE

REACTIONS (2)
  - Drug abuse [Fatal]
  - Exposure via ingestion [None]
